FAERS Safety Report 15807003 (Version 1)
Quarter: 2019Q1

REPORT INFORMATION
  Report Type: Spontaneous
  Country: US (occurrence: US)
  Receive Date: 20190110
  Receipt Date: 20190110
  Transmission Date: 20190417
  Serious: No
  Sender: FDA-Public Use
  Company Number: US-MYLANLABS-2019M1000252

PATIENT

DRUGS (3)
  1. CLONIDINE TRANSDERMAL SYSTEM [Suspect]
     Active Substance: CLONIDINE
     Indication: HYPERTENSION
     Dosage: 1 DOSAGE FORM
     Route: 062
  2. CLONIDINE. [Concomitant]
     Active Substance: CLONIDINE
     Indication: HYPERTENSION
     Dosage: UNK
  3. AMILORIDE [Concomitant]
     Active Substance: AMILORIDE
     Indication: DIURETIC THERAPY
     Dosage: UNK UNK, QD
     Route: 048

REACTIONS (5)
  - Wrong technique in product usage process [Unknown]
  - Drug effect variable [Not Recovered/Not Resolved]
  - Drug ineffective [Unknown]
  - Blood pressure increased [Not Recovered/Not Resolved]
  - Product adhesion issue [Unknown]
